FAERS Safety Report 9798265 (Version 1)
Quarter: 2014Q1

REPORT INFORMATION
  Report Type: Spontaneous
  Country: US (occurrence: US)
  Receive Date: 20140106
  Receipt Date: 20140106
  Transmission Date: 20141002
  Serious: No
  Sender: FDA-Public Use
  Company Number: US-PFIZER INC-2014002470

PATIENT
  Age: 71 Year
  Sex: Female
  Weight: 58.96 kg

DRUGS (4)
  1. LIPITOR [Suspect]
     Indication: BLOOD CHOLESTEROL INCREASED
     Dosage: UNK, ONCE A DAY
     Route: 048
     Dates: start: 2012, end: 2012
  2. LIPITOR [Suspect]
     Dosage: UNK
     Route: 048
     Dates: start: 2012, end: 2012
  3. ASPIRIN [Concomitant]
     Dosage: 325 MG, UNK
  4. NIACIN [Concomitant]
     Dosage: UNK

REACTIONS (6)
  - Myalgia [Unknown]
  - Pain in extremity [Unknown]
  - Insomnia [Unknown]
  - Muscle spasms [Unknown]
  - Pain [Unknown]
  - Blood pressure abnormal [Unknown]
